FAERS Safety Report 6872567-5 (Version None)
Quarter: 2010Q3

REPORT INFORMATION
  Report Type: 
  Country: None (occurrence: None)
  Receive Date: 20100723
  Receipt Date: 20100715
  Transmission Date: 20110219
  Serious: Yes (Hospitalization)
  Sender: FDA-Public Use
  Company Number: US-ABBOTT-10P-163-0657952-00

PATIENT
  Sex: Female
  Weight: 155.27 kg

DRUGS (2)
  1. SYNTHROID [Suspect]
     Indication: THYROID CANCER
     Route: 048
     Dates: start: 19940101, end: 20100524
  2. SYNTHROID [Suspect]
     Indication: HORMONE SUPPRESSION THERAPY
     Route: 048
     Dates: start: 20100525

REACTIONS (5)
  - ATRIAL FIBRILLATION [None]
  - BLOOD PRESSURE INCREASED [None]
  - FEELING HOT [None]
  - HEART RATE INCREASED [None]
  - THYROTOXIC CRISIS [None]
